FAERS Safety Report 8554540-4 (Version None)
Quarter: 2012Q3

REPORT INFORMATION
  Report Type: 
  Country: None (occurrence: None)
  Receive Date: 20120726
  Receipt Date: 20120726
  Transmission Date: 20120928
  Serious: Yes (Life-Threatening)
  Sender: FDA-Public Use
  Company Number: None

PATIENT
  Age: 30 Year
  Sex: Female
  Weight: 81.6475 kg

DRUGS (2)
  1. TOPAMAX [Suspect]
     Indication: COMPLEX REGIONAL PAIN SYNDROME
     Dosage: TOPAMAX 100MG TID PO
     Route: 048
  2. TOPAMAX [Suspect]
     Indication: MIGRAINE
     Dosage: TOPAMAX 100MG TID PO
     Route: 048

REACTIONS (2)
  - ANAPHYLACTIC REACTION [None]
  - PHARYNGEAL HAEMORRHAGE [None]
